FAERS Safety Report 6793661-3 (Version None)
Quarter: 2010Q2

REPORT INFORMATION
  Report Type: 
  Country: None (occurrence: None)
  Receive Date: 20100624
  Receipt Date: 20090203
  Transmission Date: 20101027
  Serious: No
  Sender: FDA-Public Use
  Company Number: US-PFIZER INC-2009154067

PATIENT
  Sex: Male

DRUGS (4)
  1. SUTENT [Suspect]
     Indication: THYROID CANCER
     Dates: start: 20080101
  2. AMITRIPTYLINE [Concomitant]
     Indication: DEPRESSION
     Dosage: UNK
  3. NEXIUM [Concomitant]
     Dosage: UNK
  4. LORTAB [Concomitant]
     Indication: PAIN
     Dosage: UNK

REACTIONS (1)
  - WHITE BLOOD CELL COUNT DECREASED [None]
